FAERS Safety Report 6518575-5 (Version None)
Quarter: 2009Q4

REPORT INFORMATION
  Report Type: 
  Country: None (occurrence: None)
  Receive Date: 20091227
  Receipt Date: 20091216
  Transmission Date: 20100525
  Serious: Yes (Death)
  Sender: FDA-Public Use
  Company Number: US-JNJFOC-20060404961

PATIENT
  Age: 3 Month
  Sex: Female

DRUGS (2)
  1. TYLENOL (CAPLET) [Suspect]
     Indication: IMMUNISATION REACTION
  2. IMMUNIZATIONS [Concomitant]

REACTIONS (1)
  - DEATH [None]
